FAERS Safety Report 18570868 (Version 1)
Quarter: 2020Q4

REPORT INFORMATION
  Report Type: Spontaneous
  Country: US (occurrence: US)
  Receive Date: 20201202
  Receipt Date: 20201202
  Transmission Date: 20210114
  Serious: No
  Sender: FDA-Public Use
  Company Number: US-ROCHE-2699450

PATIENT
  Sex: Female
  Weight: 54 kg

DRUGS (1)
  1. EVRYSDI [Suspect]
     Active Substance: RISDIPLAM
     Indication: SPINAL MUSCULAR ATROPHY
     Dosage: 6.6 ML
     Route: 048
     Dates: start: 20201010

REACTIONS (7)
  - Dizziness [Unknown]
  - Nausea [Unknown]
  - Chest pain [Not Recovered/Not Resolved]
  - Feeling hot [Unknown]
  - Heart rate increased [Unknown]
  - Swollen tongue [Unknown]
  - Paraesthesia oral [Unknown]
